FAERS Safety Report 16840646 (Version 1)
Quarter: 2019Q3

REPORT INFORMATION
  Report Type: Spontaneous
  Country: FR (occurrence: FR)
  Receive Date: 20190923
  Receipt Date: 20190923
  Transmission Date: 20191005
  Serious: Yes (Death, Other)
  Sender: FDA-Public Use
  Company Number: FR-PFIZER INC-2019402889

PATIENT
  Age: 57 Year
  Sex: Male
  Weight: 48.6 kg

DRUGS (10)
  1. DUROGESIC [Concomitant]
     Active Substance: FENTANYL
     Dosage: UNK
  2. PARACETAMOL [Suspect]
     Active Substance: ACETAMINOPHEN
     Indication: PAIN
     Dosage: UNK
     Route: 048
     Dates: start: 20190809, end: 20190827
  3. AUGMENTIN [Suspect]
     Active Substance: AMOXICILLIN\CLAVULANATE POTASSIUM
     Indication: WOUND INFECTION
     Dosage: UNK
     Route: 042
     Dates: start: 20190812, end: 20190826
  4. KARDEGIC [Suspect]
     Active Substance: ASPIRIN DL-LYSINE
     Indication: CARDIOVASCULAR EVENT PROPHYLAXIS
     Dosage: 1 DF, DAILY
     Route: 048
     Dates: start: 20190818, end: 20190827
  5. SERESTA [Concomitant]
     Active Substance: OXAZEPAM
     Dosage: UNK
  6. ZOLOFT [Suspect]
     Active Substance: SERTRALINE HYDROCHLORIDE
     Indication: DEPRESSION
     Dosage: 1 DF, DAILY
     Route: 048
     Dates: start: 20190809, end: 20190828
  7. LOVENOX [Suspect]
     Active Substance: ENOXAPARIN SODIUM
     Indication: THROMBOSIS PROPHYLAXIS
     Dosage: 1 DF, DAILY
     Route: 042
     Dates: start: 20190822, end: 20190823
  8. HEPARINE CHOAY [Suspect]
     Active Substance: HEPARIN SODIUM
     Indication: THROMBOSIS PROPHYLAXIS
     Dosage: 1 DF (5000 IU/ML), DAILY
     Route: 042
     Dates: start: 20190808, end: 20190822
  9. IMOVANE [Concomitant]
     Active Substance: ZOPICLONE
     Dosage: UNK
  10. ORGARAN [Concomitant]
     Active Substance: DANAPAROID SODIUM
     Dosage: UNK

REACTIONS (2)
  - Death [Fatal]
  - Thrombocytopenia [Not Recovered/Not Resolved]

NARRATIVE: CASE EVENT DATE: 20190819
